FAERS Safety Report 10928063 (Version 1)
Quarter: 2015Q1

REPORT INFORMATION
  Report Type: Spontaneous
  Country: US (occurrence: None)
  Receive Date: 20150317
  Receipt Date: 20150317
  Transmission Date: 20150721
  Serious: No
  Sender: FDA-Public Use
  Company Number: None

PATIENT
  Age: 53 Year
  Sex: Female
  Weight: 54.43 kg

DRUGS (13)
  1. C-E2 [Concomitant]
  2. NUTRI WEST DSF FORMULA [Concomitant]
  3. NATURE^S BOUNTY TRIPLE STRENGTH CRANBERRY [Concomitant]
  4. TOPIRAMATE. [Concomitant]
     Active Substance: TOPIRAMATE
  5. AMITIZA [Concomitant]
     Active Substance: LUBIPROSTONE
  6. CATAPLEX A-C-ALIGN [Concomitant]
  7. QUANTUM [Concomitant]
  8. PROGESTERONE. [Concomitant]
     Active Substance: PROGESTERONE
  9. METAGENICS [Concomitant]
  10. ANTRONEX [Concomitant]
  11. ZYRTEC [Concomitant]
     Active Substance: CETIRIZINE HYDROCHLORIDE
  12. NATURE MADE SAM-E COMPLETE [Concomitant]
  13. KENALOG [Suspect]
     Active Substance: TRIAMCINOLONE ACETONIDE
     Indication: BACK PAIN
     Dosage: INJECED INTO SPINAL AREA
     Dates: start: 20150302, end: 20150302

REACTIONS (7)
  - Heart rate decreased [None]
  - Seizure [None]
  - Increased appetite [None]
  - Constipation [None]
  - Insomnia [None]
  - Body temperature increased [None]
  - Anxiety [None]

NARRATIVE: CASE EVENT DATE: 20150302
